FAERS Safety Report 23687308 (Version 3)
Quarter: 2024Q2

REPORT INFORMATION
  Report Type: Spontaneous
  Country: US (occurrence: US)
  Receive Date: 20240329
  Receipt Date: 20240419
  Transmission Date: 20240716
  Serious: No
  Sender: FDA-Public Use
  Company Number: US-AMGEN-USASP2024064929

PATIENT
  Age: 72 Year
  Sex: Female
  Weight: 60.771 kg

DRUGS (1)
  1. REPATHA [Suspect]
     Active Substance: EVOLOCUMAB
     Indication: Type IIa hyperlipidaemia
     Dosage: UNK /3.5 ML, Q2WK
     Route: 058

REACTIONS (4)
  - Accidental exposure to product [Unknown]
  - Drug dose omission by device [Unknown]
  - Device difficult to use [Unknown]
  - Off label use [Unknown]

NARRATIVE: CASE EVENT DATE: 20240310
